FAERS Safety Report 13796838 (Version 2)
Quarter: 2018Q3

REPORT INFORMATION
  Report Type: Spontaneous
  Country: US (occurrence: US)
  Receive Date: 20170726
  Receipt Date: 20180726
  Transmission Date: 20181010
  Serious: No
  Sender: FDA-Public Use
  Company Number: US-IMPAX LABORATORIES, INC-2016-IPXL-01452

PATIENT
  Age: 67 Year
  Sex: Male

DRUGS (1)
  1. ADRENACLICK [Suspect]
     Active Substance: EPINEPHRINE
     Indication: ANAPHYLACTIC REACTION
     Dosage: 0.3 MG, SINGLE
     Route: 065
     Dates: start: 20161018

REACTIONS (2)
  - Drug ineffective [Unknown]
  - Needle issue [Unknown]

NARRATIVE: CASE EVENT DATE: 20161018
